FAERS Safety Report 7912876-1 (Version None)
Quarter: 2011Q4

REPORT INFORMATION
  Report Type: 
  Country: None (occurrence: None)
  Receive Date: 20111114
  Receipt Date: 20111101
  Transmission Date: 20120403
  Serious: Yes (Other)
  Sender: FDA-Public Use
  Company Number: US-MYLANLABS-2011S1022842

PATIENT
  Age: 61 Year
  Sex: Female

DRUGS (3)
  1. VENLAFAXINE [Suspect]
     Indication: MAJOR DEPRESSION
     Dosage: 37.5MG DAILY THEN INCREASE TO 75MG DAILY
     Route: 065
  2. TACROLIMUS [Interacting]
     Indication: IMMUNOSUPPRESSION
     Route: 065
  3. VENLAFAXINE [Interacting]
     Dosage: 75MG DAILY
     Route: 065

REACTIONS (2)
  - SEROTONIN SYNDROME [None]
  - DRUG INTERACTION [None]
